FAERS Safety Report 16259035 (Version 1)
Quarter: 2019Q2

REPORT INFORMATION
  Report Type: Spontaneous
  Country: US (occurrence: US)
  Receive Date: 20190501
  Receipt Date: 20190501
  Transmission Date: 20190711
  Serious: Yes (Hospitalization)
  Sender: FDA-Public Use
  Company Number: US-EMMAUS MEDICAL, INC.-EMM201904-000116

PATIENT
  Age: 15 Year
  Sex: Male

DRUGS (2)
  1. ENDARI [Suspect]
     Active Substance: GLUTAMINE
     Indication: SICKLE CELL DISEASE
     Route: 048
     Dates: start: 20180516
  2. ENDARI [Suspect]
     Active Substance: GLUTAMINE
     Route: 048
     Dates: start: 201809

REACTIONS (4)
  - Hospitalisation [Unknown]
  - Abdominal discomfort [Unknown]
  - Therapy cessation [Unknown]
  - Somnolence [Unknown]

NARRATIVE: CASE EVENT DATE: 20180516
